FAERS Safety Report 5625641-5 (Version None)
Quarter: 2008Q2

REPORT INFORMATION
  Report Type: 
  Country: None (occurrence: None)
  Receive Date: 20080207
  Receipt Date: 20080207
  Transmission Date: 20081010
  Serious: Yes (Hospitalization)
  Sender: FDA-Public Use
  Company Number: None

PATIENT
  Age: 77 Year
  Sex: Male
  Weight: 91.4905 kg

DRUGS (1)
  1. CETUXIMAB 100MG/VIALS BMS [Suspect]
     Indication: NON-SMALL CELL LUNG CANCER STAGE IV
     Dosage: 250MG/M2 WEEKLY IV
     Route: 042
     Dates: start: 20070104, end: 20080130

REACTIONS (1)
  - SYNCOPE VASOVAGAL [None]
